FAERS Safety Report 21713725 (Version 1)
Quarter: 2022Q4

REPORT INFORMATION
  Report Type: Spontaneous
  Country: US (occurrence: None)
  Receive Date: 20221210
  Receipt Date: 20221210
  Transmission Date: 20230112
  Serious: Yes (Hospitalization, Other)
  Sender: FDA-Public Use
  Company Number: None

PATIENT
  Age: 64 Year
  Sex: Female
  Weight: 86.85 kg

DRUGS (2)
  1. DIETARY SUPPLEMENT [Suspect]
     Active Substance: DIETARY SUPPLEMENT
  2. DEXAMETHASONE [Suspect]
     Active Substance: DEXAMETHASONE

REACTIONS (2)
  - Asthenia [None]
  - Adrenal insufficiency [None]

NARRATIVE: CASE EVENT DATE: 20221210
